FAERS Safety Report 24030858 (Version 1)
Quarter: 2024Q2

REPORT INFORMATION
  Report Type: Spontaneous
  Country: RS (occurrence: RS)
  Receive Date: 20240628
  Receipt Date: 20240628
  Transmission Date: 20240715
  Serious: Yes (Hospitalization, Other)
  Sender: FDA-Public Use
  Company Number: RS-002147023-NVSC2024RS089533

PATIENT
  Age: 67 Year
  Sex: Female
  Weight: 52 kg

DRUGS (2)
  1. MAYZENT [Suspect]
     Active Substance: SIPONIMOD
     Indication: Multiple sclerosis
     Dosage: 2 MG, QD
     Route: 048
     Dates: start: 20230921, end: 20240414
  2. NADROPARIN CALCIUM [Concomitant]
     Active Substance: NADROPARIN CALCIUM
     Indication: Product used for unknown indication
     Dosage: 0.6 L, (HOME TREATMENT FOR 28 DAYS)
     Route: 058

REACTIONS (3)
  - Hallucination [Recovered/Resolved]
  - Headache [Recovering/Resolving]
  - Femoral neck fracture [Unknown]

NARRATIVE: CASE EVENT DATE: 20240418
